FAERS Safety Report 4347098-7 (Version None)
Quarter: 2004Q2

REPORT INFORMATION
  Report Type: 
  Country: None (occurrence: None)
  Receive Date: 20040422
  Receipt Date: 20040406
  Transmission Date: 20050107
  Serious: Yes (Hospitalization, Other)
  Sender: FDA-Public Use
  Company Number: USA040464200

PATIENT
  Age: 35 Year
  Sex: Female
  Weight: 123 kg

DRUGS (5)
  1. ZYPREXA [Suspect]
     Indication: BIPOLAR DISORDER
     Dosage: 10 MG/1 DAY
     Dates: start: 19990101
  2. LITHIUM CARBONATE [Concomitant]
  3. ZOLOFT [Concomitant]
  4. VISTARIL [Concomitant]
  5. ESTRADIOL [Concomitant]

REACTIONS (7)
  - BENIGN UTERINE NEOPLASM [None]
  - BODY HEIGHT DECREASED [None]
  - FATIGUE [None]
  - INCREASED APPETITE [None]
  - MANIA [None]
  - SOMNOLENCE [None]
  - WEIGHT INCREASED [None]
